FAERS Safety Report 7361476-3 (Version None)
Quarter: 2011Q1

REPORT INFORMATION
  Report Type: 
  Country: None (occurrence: None)
  Receive Date: 20110318
  Receipt Date: 20110309
  Transmission Date: 20110831
  Serious: No
  Sender: FDA-Public Use
  Company Number: US-JNJFOC-20110305244

PATIENT
  Age: 31 Year
  Sex: Male
  Weight: 88.45 kg

DRUGS (4)
  1. INVEGA SUSTENNA [Suspect]
     Indication: PSYCHOTIC DISORDER
     Route: 030
  2. INVEGA SUSTENNA [Suspect]
     Route: 030
  3. COGENTIN [Concomitant]
     Route: 065
  4. SEROQUEL [Concomitant]
     Route: 065

REACTIONS (2)
  - INJECTION SITE MASS [None]
  - DRUG INEFFECTIVE [None]
